FAERS Safety Report 9880585 (Version 1)
Quarter: 2014Q1

REPORT INFORMATION
  Report Type: Spontaneous
  Country: DE (occurrence: None)
  Receive Date: 20140205
  Receipt Date: 20140205
  Transmission Date: 20141002
  Serious: Yes (Other)
  Sender: FDA-Public Use
  Company Number: 1401-0200

PATIENT
  Age: 59 Year
  Sex: Male

DRUGS (1)
  1. EYLEA (AFLIBERCEPT) (AFLIBERCEPT) [Suspect]
     Indication: AGE-RELATED MACULAR DEGENERATION
     Route: 031
     Dates: start: 20130814

REACTIONS (1)
  - Cataract nuclear [None]
